FAERS Safety Report 9244606 (Version 2)
Quarter: 2013Q2

REPORT INFORMATION
  Report Type: Spontaneous
  Country: JP (occurrence: JP)
  Receive Date: 20130422
  Receipt Date: 20130510
  Transmission Date: 20140414
  Serious: Yes (Other)
  Sender: FDA-Public Use
  Company Number: JP-PFIZER INC-2013122548

PATIENT
  Age: 72 Year
  Sex: Male

DRUGS (5)
  1. LYRICA [Suspect]
     Indication: NEURALGIA
     Dosage: 75 MG, 1X/DAY
     Route: 048
     Dates: start: 20130109
  2. CALCIUM LEVOFOLINATE [Suspect]
     Indication: NEOPLASM MALIGNANT
  3. 5-FU [Concomitant]
     Indication: NEOPLASM MALIGNANT
  4. ELPLAT [Concomitant]
     Indication: NEOPLASM MALIGNANT
     Dosage: UNK
     Dates: end: 20130227
  5. IRINOTECAN [Concomitant]
     Indication: NEOPLASM MALIGNANT

REACTIONS (1)
  - Blood triglycerides increased [Recovered/Resolved]
